FAERS Safety Report 7573407-1 (Version None)
Quarter: 2011Q2

REPORT INFORMATION
  Report Type: 
  Country: None (occurrence: None)
  Receive Date: 20110627
  Receipt Date: 20110405
  Transmission Date: 20111010
  Serious: No
  Sender: FDA-Public Use
  Company Number: A0922492A

PATIENT
  Sex: Female

DRUGS (1)
  1. LAMICTAL XR [Suspect]
     Dosage: 100MG UNKNOWN
     Dates: start: 20110205

REACTIONS (1)
  - ILL-DEFINED DISORDER [None]
